FAERS Safety Report 6579973-7 (Version None)
Quarter: 2010Q1

REPORT INFORMATION
  Report Type: 
  Country: None (occurrence: None)
  Receive Date: 20100203
  Receipt Date: 20100127
  Transmission Date: 20100710
  Serious: Yes (Other)
  Sender: FDA-Public Use
  Company Number: 2009SP037253

PATIENT
  Age: 74 Year
  Sex: Male
  Weight: 60.1 kg

DRUGS (5)
  1. PEG-INTRON [Suspect]
     Indication: HEPATITIS C
     Dosage: 80 MCG, QW, SC
     Route: 058
     Dates: start: 20081006, end: 20091112
  2. REBETOL [Suspect]
     Indication: HEPATITIS C
     Dosage: 300 MG, BID, PO
     Route: 048
     Dates: start: 20081006, end: 20091119
  3. NORVASC [Concomitant]
  4. JUVELA N [Concomitant]
  5. METHYCOBAL [Concomitant]

REACTIONS (1)
  - IIIRD NERVE PARALYSIS [None]
